FAERS Safety Report 17940196 (Version 1)
Quarter: 2020Q2

REPORT INFORMATION
  Report Type: Spontaneous
  Country: US (occurrence: US)
  Receive Date: 20200624
  Receipt Date: 20200624
  Transmission Date: 20200714
  Serious: No
  Sender: FDA-Public Use
  Company Number: US-EPIC PHARMA LLC-2020EPC00001

PATIENT
  Sex: Female
  Weight: 64.4 kg

DRUGS (3)
  1. UNSPECIFIED STROKE MEDICATIONS [Concomitant]
  2. IBUPROFEN. [Suspect]
     Active Substance: IBUPROFEN
     Indication: HEADACHE
     Dosage: 200 MG, AS NEEDED AS NEEDED 1-2X/WEEK
     Route: 048
  3. IBUPROFEN. [Suspect]
     Active Substance: IBUPROFEN
     Indication: PAIN
     Dosage: 200 MG, AS NEEDED 1-2X/WEEK
     Route: 048

REACTIONS (3)
  - Product quality issue [Not Recovered/Not Resolved]
  - Diarrhoea [Recovered/Resolved]
  - Abdominal pain upper [Recovered/Resolved]

NARRATIVE: CASE EVENT DATE: 2019
